FAERS Safety Report 5405995-5 (Version None)
Quarter: 2007Q3

REPORT INFORMATION
  Report Type: 
  Country: None (occurrence: None)
  Receive Date: 20070802
  Receipt Date: 20070723
  Transmission Date: 20080115
  Serious: Yes (Hospitalization)
  Sender: FDA-Public Use
  Company Number: 6036013

PATIENT
  Age: 76 Year
  Sex: Female

DRUGS (11)
  1. CARBOMERCK 1% (10 MILLIGRAM, MILLILITERS, INTRAVENOUS INFUSION) [Suspect]
     Indication: SMALL CELL LUNG CANCER STAGE UNSPECIFIED
     Dosage: 389 MG (389
     Route: 042
     Dates: start: 20070703
  2. ETOPOSIDE [Suspect]
     Indication: SMALL CELL LUNG CANCER STAGE UNSPECIFIED
     Dosage: INTRAVENOUS
     Route: 042
     Dates: start: 20070703
  3. DEXART (DEXAMETHASONE SODIUM PHOSPHATE) [Concomitant]
  4. KYTRIL [Concomitant]
  5. MUCODYNE (TABLET) (CARBOCISTEINE) [Concomitant]
  6. MERCAZOLE (TABLET) (THIAMAZOLD) [Concomitant]
  7. MEPTIN (TABLET) (PROCATEROL HYDROCHLORIDE) [Concomitant]
  8. TERSIGAN (OKITROPIUM BROMIDE) [Concomitant]
  9. LOXOPROFEN (TABLET) (LOXOPROFEN) [Concomitant]
  10. SELBEX (CAPSULE) (TEPRENONE) [Concomitant]
  11. GASTER D (TABLET) (FAMOTIDINE) [Concomitant]

REACTIONS (1)
  - FEBRILE NEUTROPENIA [None]
